FAERS Safety Report 7427611-3 (Version None)
Quarter: 2011Q2

REPORT INFORMATION
  Report Type: 
  Country: None (occurrence: None)
  Receive Date: 20110420
  Receipt Date: 20110414
  Transmission Date: 20111010
  Serious: Yes (Other)
  Sender: FDA-Public Use
  Company Number: US-BRISTOL-MYERS SQUIBB COMPANY-15677008

PATIENT
  Age: 64 Year
  Sex: Female

DRUGS (2)
  1. ROPINIROLE [Concomitant]
  2. BARACLUDE [Suspect]
     Route: 048

REACTIONS (1)
  - TENDON RUPTURE [None]
